FAERS Safety Report 5853604-3 (Version None)
Quarter: 2008Q3

REPORT INFORMATION
  Report Type: 
  Country: None (occurrence: None)
  Receive Date: 20080822
  Receipt Date: 20080813
  Transmission Date: 20090109
  Serious: Yes (Other)
  Sender: FDA-Public Use
  Company Number: US-JNJFOC-20080803050

PATIENT
  Sex: Male
  Weight: 107.05 kg

DRUGS (5)
  1. REMICADE [Suspect]
     Indication: RHEUMATOID ARTHRITIS
     Dosage: 3 OR 5 INFUSIONS
     Route: 042
  2. ARAVA [Concomitant]
  3. LOTENSIN [Concomitant]
  4. ATENOLOL [Concomitant]
  5. RELAFEN [Concomitant]

REACTIONS (1)
  - OCULAR VASCULAR DISORDER [None]
